FAERS Safety Report 8585661-8 (Version None)
Quarter: 2012Q3

REPORT INFORMATION
  Report Type: 
  Country: None (occurrence: None)
  Receive Date: 20120810
  Receipt Date: 20120807
  Transmission Date: 20120928
  Serious: Yes (Hospitalization)
  Sender: FDA-Public Use
  Company Number: US-B.I. PHARMACEUTICALS,INC./RIDGEFIELD-2012-BP-17770BP

PATIENT
  Sex: Female

DRUGS (7)
  1. FLUTICASONE PROPIONATE [Concomitant]
  2. SPIRIVA [Suspect]
     Indication: LUNG DISORDER
  3. NORCO [Concomitant]
     Indication: CERVICAL VERTEBRAL FRACTURE
  4. SPIRIVA [Suspect]
     Indication: CHRONIC OBSTRUCTIVE PULMONARY DISEASE
  5. GABAPENTIN [Suspect]
     Indication: CERVICAL VERTEBRAL FRACTURE
  6. VENTOLIN [Concomitant]
  7. ANTIBIOTIC [Concomitant]
     Indication: BRONCHITIS

REACTIONS (4)
  - CERVICAL VERTEBRAL FRACTURE [None]
  - SOMNOLENCE [None]
  - MALAISE [None]
  - BRONCHITIS [None]
